FAERS Safety Report 9863354 (Version 1)
Quarter: 2014Q1

REPORT INFORMATION
  Report Type: Spontaneous
  Country: CA (occurrence: CA)
  Receive Date: 20140203
  Receipt Date: 20140203
  Transmission Date: 20141002
  Serious: Yes (Other)
  Sender: FDA-Public Use
  Company Number: CA-ACTAVIS-2014-01033

PATIENT
  Age: 27 Year
  Sex: Female

DRUGS (1)
  1. DOXYCYCLINE (UNKNOWN) [Suspect]
     Indication: URINARY TRACT INFECTION
     Dosage: UNK
     Route: 048

REACTIONS (2)
  - Oesophageal ulcer [Unknown]
  - Oesophagitis [Unknown]
